FAERS Safety Report 7473634-8 (Version None)
Quarter: 2011Q2

REPORT INFORMATION
  Report Type: 
  Country: None (occurrence: None)
  Receive Date: 20110511
  Receipt Date: 20110124
  Transmission Date: 20111010
  Serious: Yes (Life-Threatening, Hospitalization, Other)
  Sender: FDA-Public Use
  Company Number: PHBS2003JP01063

PATIENT
  Sex: Female
  Weight: 50 kg

DRUGS (10)
  1. TEGRETOL [Suspect]
     Dosage: 200 MG, BID
     Route: 048
     Dates: start: 20021213, end: 20030109
  2. TEGRETOL [Suspect]
     Dosage: 200 MG, TID
     Dates: start: 20021101, end: 20021212
  3. TIZANIDINE HYDROCHLORIDE [Suspect]
     Indication: MYOTONIA
     Route: 065
     Dates: start: 20020901, end: 20020901
  4. SELBEX [Concomitant]
     Dosage: 150 MG/DAY
     Route: 048
     Dates: start: 20021002
  5. FAMOTIDINE [Suspect]
     Route: 065
     Dates: end: 20020101
  6. TEGRETOL [Suspect]
     Dosage: 200 MG, TID
     Route: 048
     Dates: start: 20020909, end: 20020912
  7. PREDNISOLONE [Concomitant]
     Indication: MULTIPLE SCLEROSIS
     Dosage: 15 MG/DAY
     Route: 048
     Dates: start: 20021101
  8. TEGRETOL [Suspect]
     Dosage: 200 MG, QID
     Route: 048
     Dates: start: 20020913, end: 20020930
  9. RIZE [Concomitant]
     Dosage: 5 MG/DAY
     Route: 048
     Dates: start: 20021002
  10. TEGRETOL [Suspect]
     Indication: MUSCLE SPASMS
     Dosage: 200 MG, BID
     Route: 048
     Dates: start: 20020815, end: 20020908

REACTIONS (16)
  - PYREXIA [None]
  - NEUROMYELITIS OPTICA [None]
  - MYELITIS [None]
  - OPTIC NEURITIS [None]
  - GENERALISED ERYTHEMA [None]
  - EOSINOPHILIA [None]
  - HEPATIC FUNCTION ABNORMAL [None]
  - UPPER RESPIRATORY TRACT INFECTION [None]
  - PRODUCTIVE COUGH [None]
  - PRURITUS [None]
  - HYPOGAMMAGLOBULINAEMIA [None]
  - LUNG INFILTRATION [None]
  - RALES [None]
  - RASH GENERALISED [None]
  - PNEUMONIA [None]
  - SKIN EXFOLIATION [None]
